FAERS Safety Report 8341296-3 (Version None)
Quarter: 2012Q2

REPORT INFORMATION
  Report Type: 
  Country: None (occurrence: None)
  Receive Date: 20120507
  Receipt Date: 20091228
  Transmission Date: 20120825
  Serious: No
  Sender: FDA-Public Use
  Company Number: US-TEVA-2009028123

PATIENT
  Sex: Female

DRUGS (1)
  1. TREANDA [Suspect]
     Indication: CHRONIC LYMPHOCYTIC LEUKAEMIA
     Route: 042
     Dates: start: 20091001, end: 20091101

REACTIONS (5)
  - INFUSION RELATED REACTION [None]
  - SLUGGISHNESS [None]
  - PYREXIA [None]
  - CHILLS [None]
  - HAEMOLYSIS [None]
